FAERS Safety Report 9101054 (Version 1)
Quarter: 2013Q1

REPORT INFORMATION
  Report Type: Spontaneous
  Country: US (occurrence: US)
  Receive Date: 20130215
  Receipt Date: 20130215
  Transmission Date: 20140127
  Serious: Yes (Death)
  Sender: FDA-Public Use
  Company Number: US-BANPHARM-20130807

PATIENT
  Age: 62 Year
  Sex: Female

DRUGS (3)
  1. DIPHENHYDRAMINE UNKNOWN PRODUCT [Suspect]
     Route: 048
  2. CITALOPRAM [Suspect]
     Route: 048
  3. ETHANOL [Suspect]

REACTIONS (1)
  - Completed suicide [Fatal]
